FAERS Safety Report 4694330-6 (Version None)
Quarter: 2005Q2

REPORT INFORMATION
  Report Type: 
  Country: None (occurrence: None)
  Receive Date: 20050620
  Receipt Date: 20030906
  Transmission Date: 20051028
  Serious: Yes (Hospitalization)
  Sender: FDA-Public Use
  Company Number: US-AMGEN-KDL048194

PATIENT
  Sex: Female

DRUGS (1)
  1. ENBREL [Suspect]
     Indication: RHEUMATOID ARTHRITIS
     Route: 058
     Dates: start: 20000718, end: 20030712

REACTIONS (5)
  - CONDITION AGGRAVATED [None]
  - GUILLAIN-BARRE SYNDROME [None]
  - HEPATIC ENZYME INCREASED [None]
  - RHEUMATOID ARTHRITIS [None]
  - STAPHYLOCOCCAL OSTEOMYELITIS [None]
